FAERS Safety Report 21010814 (Version 1)
Quarter: 2022Q2

REPORT INFORMATION
  Report Type: Spontaneous
  Country: CN (occurrence: CN)
  Receive Date: 20220627
  Receipt Date: 20220627
  Transmission Date: 20220720
  Serious: Yes (Hospitalization, Other)
  Sender: FDA-Public Use
  Company Number: None

PATIENT
  Age: 13 Year
  Sex: Female
  Weight: 39 kg

DRUGS (11)
  1. CYCLOPHOSPHAMIDE [Suspect]
     Active Substance: CYCLOPHOSPHAMIDE
     Indication: Precursor T-lymphoblastic lymphoma/leukaemia
     Dosage: 0.57 G, QD CYCLOPHOSPHAMIDE 0.57G + 5% GS 100ML
     Route: 041
     Dates: start: 20220605, end: 20220609
  2. SODIUM CHLORIDE [Suspect]
     Active Substance: SODIUM CHLORIDE
     Indication: Medication dilution
     Dosage: 750 ML, QD ETOPOSIDE 100MG + NS 750M1
     Route: 041
     Dates: start: 20220605, end: 20220609
  3. ANHYDROUS DEXTROSE [Suspect]
     Active Substance: ANHYDROUS DEXTROSE
     Dosage: 100 ML, QD, CYCLOPHOSPHAMIDE 0.57G + 5% GS 100ML
     Route: 041
     Dates: start: 20220605, end: 20220609
  4. ETOPOSIDE [Suspect]
     Active Substance: ETOPOSIDE
     Indication: Precursor T-lymphoblastic lymphoma/leukaemia
     Dosage: 100 MG, QD. ETOPOSIDE 100MG + NS 750M1
     Route: 041
     Dates: start: 20220605, end: 20220609
  5. BORTEZOMIB [Suspect]
     Active Substance: BORTEZOMIB
     Indication: Precursor T-lymphoblastic lymphoma/leukaemia
     Dosage: BORTEZOMIB 1.7 MG + NS 10 ML
     Route: 042
     Dates: start: 20220605, end: 20220605
  6. BORTEZOMIB [Suspect]
     Active Substance: BORTEZOMIB
     Dosage: BORTEZOMIB 1.7 MG + NS 10 ML
     Route: 042
     Dates: start: 20220608
  7. BORTEZOMIB [Suspect]
     Active Substance: BORTEZOMIB
     Dosage: BORTEZOMIB 1.7 MG + NS 10 ML
     Route: 042
     Dates: start: 20220612
  8. TUCIDINOSTAT [Suspect]
     Active Substance: TUCIDINOSTAT
     Indication: Precursor T-lymphoblastic lymphoma/leukaemia
     Dosage: 2 TABLETS, QD
     Route: 048
     Dates: start: 20220614, end: 20220614
  9. SODIUM CHLORIDE [Suspect]
     Active Substance: SODIUM CHLORIDE
     Indication: Medication dilution
     Dosage: BORTEZOMIB 1.7 MG + NS 10 ML
     Route: 042
     Dates: start: 20220605, end: 20220605
  10. SODIUM CHLORIDE [Suspect]
     Active Substance: SODIUM CHLORIDE
     Dosage: BORTEZOMIB 1.7 MG + NS 10 ML
     Route: 042
     Dates: start: 20220608
  11. SODIUM CHLORIDE [Suspect]
     Active Substance: SODIUM CHLORIDE
     Dosage: BORTEZOMIB 1.7 MG + NS 10 ML
     Route: 042
     Dates: start: 20220612

REACTIONS (5)
  - Hepatic function abnormal [Recovering/Resolving]
  - Neutropenia [Recovering/Resolving]
  - Thrombocytopenia [Recovering/Resolving]
  - White blood cell count decreased [Recovering/Resolving]
  - Myelosuppression [Unknown]

NARRATIVE: CASE EVENT DATE: 20220608
